FAERS Safety Report 23981926 (Version 2)
Quarter: 2024Q3

REPORT INFORMATION
  Report Type: Spontaneous
  Country: ZA (occurrence: None)
  Receive Date: 20240617
  Receipt Date: 20240708
  Transmission Date: 20241016
  Serious: Yes (Hospitalization)
  Sender: ASTRAZENECA
  Company Number: 2024A136282

PATIENT
  Age: 81 Year
  Sex: Male

DRUGS (5)
  1. DAPAGLIFLOZIN PROPANEDIOL [Suspect]
     Active Substance: DAPAGLIFLOZIN PROPANEDIOL
     Indication: Diabetes mellitus
     Dosage: 10.0MG UNKNOWN
     Route: 048
  2. SPIRACTIN [Concomitant]
     Indication: Hypertension
     Dosage: 25.0MG UNKNOWN
     Route: 048
  3. FUROSEMIDE [Concomitant]
     Active Substance: FUROSEMIDE
     Indication: Hypertension
     Dosage: 40.0MG UNKNOWN
     Route: 048
  4. CARVEDILOL [Concomitant]
     Active Substance: CARVEDILOL
     Indication: Hypertension
     Dosage: 6.25MG UNKNOWN
     Route: 048
  5. BE-TABS FOLIC-ACID [Concomitant]
     Indication: Coronary artery disease
     Dosage: 5.0MG UNKNOWN
     Route: 048

REACTIONS (1)
  - Fall [Unknown]
